FAERS Safety Report 23328710 (Version 1)
Quarter: 2023Q4

REPORT INFORMATION
  Report Type: Report from Study
  Country: US (occurrence: US)
  Receive Date: 20231221
  Receipt Date: 20231221
  Transmission Date: 20240110
  Serious: Yes (Other)
  Sender: FDA-Public Use
  Company Number: US-ABBVIE-4737851

PATIENT
  Age: 30 Year
  Sex: Female
  Weight: 70 kg

DRUGS (2)
  1. HUMIRA [Suspect]
     Active Substance: ADALIMUMAB
     Indication: Rheumatoid arthritis
     Route: 058
     Dates: start: 20220126
  2. HUMIRA [Suspect]
     Active Substance: ADALIMUMAB
     Route: 058
     Dates: start: 20230126

REACTIONS (7)
  - Epidural injection [Unknown]
  - Live birth [Unknown]
  - Maternal exposure during pregnancy [Unknown]
  - Hypertension [Unknown]
  - Rheumatoid arthritis [Not Recovered/Not Resolved]
  - Injection site pain [Unknown]
  - Joint range of motion decreased [Not Recovered/Not Resolved]

NARRATIVE: CASE EVENT DATE: 20221201
